FAERS Safety Report 7728501-9 (Version None)
Quarter: 2011Q3

REPORT INFORMATION
  Report Type: 
  Country: None (occurrence: None)
  Receive Date: 20110906
  Receipt Date: 20110829
  Transmission Date: 20111222
  Serious: Yes (Other)
  Sender: FDA-Public Use
  Company Number: US-BRISTOL-MYERS SQUIBB COMPANY-16025512

PATIENT
  Age: 38 Year
  Sex: Male

DRUGS (2)
  1. CYMBALTA [Suspect]
  2. TRAZODONE HCL [Suspect]

REACTIONS (3)
  - SUICIDAL IDEATION [None]
  - ERECTION INCREASED [None]
  - DRUG INEFFECTIVE [None]
